FAERS Safety Report 18007483 (Version 2)
Quarter: 2022Q3

REPORT INFORMATION
  Report Type: Other
  Country: CA (occurrence: CA)
  Receive Date: 20200710
  Receipt Date: 20220830
  Transmission Date: 20221027
  Serious: Yes (Other)
  Sender: FDA-Public Use
  Company Number: CA-PFIZER INC-2020261352

PATIENT
  Sex: Female

DRUGS (4)
  1. IBUPROFEN [Suspect]
     Active Substance: IBUPROFEN
     Indication: Ebstein^s anomaly
     Dosage: 400 MG, 4X/DAY
     Route: 065
  2. INDOMETHACIN [Suspect]
     Active Substance: INDOMETHACIN
     Indication: Ebstein^s anomaly
     Dosage: 100 MG
     Route: 054
  3. INDOMETHACIN [Suspect]
     Active Substance: INDOMETHACIN
     Dosage: 25 MG, 4X/DAY
     Route: 048
  4. INDOMETHACIN [Suspect]
     Active Substance: INDOMETHACIN
     Dosage: 300 MG, 1X/DAY
     Route: 065

REACTIONS (3)
  - Maternal exposure during pregnancy [Unknown]
  - Oligohydramnios [Unknown]
  - Product use in unapproved indication [Unknown]
